FAERS Safety Report 4997018-7 (Version None)
Quarter: 2006Q2

REPORT INFORMATION
  Report Type: 
  Country: None (occurrence: None)
  Receive Date: 20060505
  Receipt Date: 20060505
  Transmission Date: 20061013
  Serious: Yes (Hospitalization)
  Sender: FDA-Public Use
  Company Number: None

PATIENT
  Age: 84 Year
  Sex: Female

DRUGS (7)
  1. GEODON [Suspect]
     Indication: DEPRESSION
     Dosage: 20 MG BID PTA
  2. ARICEPT [Concomitant]
  3. EFFEXOR [Concomitant]
  4. INDERAL [Concomitant]
  5. ASPIRIN [Concomitant]
  6. TYLENOL (CAPLET) [Concomitant]
  7. ULTRACET [Concomitant]

REACTIONS (7)
  - DEMENTIA [None]
  - HYPOKALAEMIA [None]
  - ILL-DEFINED DISORDER [None]
  - LETHARGY [None]
  - LOSS OF CONSCIOUSNESS [None]
  - SOMNOLENCE [None]
  - SYNCOPE [None]
